FAERS Safety Report 7945135-1 (Version None)
Quarter: 2011Q4

REPORT INFORMATION
  Report Type: 
  Country: None (occurrence: None)
  Receive Date: 20111129
  Receipt Date: 20111129
  Transmission Date: 20120403
  Serious: Yes (Hospitalization)
  Sender: FDA-Public Use
  Company Number: None

PATIENT
  Sex: Male
  Weight: 68.038 kg

DRUGS (2)
  1. PRADAXA [Suspect]
     Indication: ATRIAL FIBRILLATION
     Dosage: 150 MG
     Route: 048
     Dates: start: 20111117, end: 20111118
  2. PRADAXA [Suspect]
     Indication: CARDIAC DISORDER
     Dosage: 150 MG
     Route: 048
     Dates: start: 20111117, end: 20111118

REACTIONS (1)
  - HAEMOPTYSIS [None]
